FAERS Safety Report 6976144-7 (Version None)
Quarter: 2010Q3

REPORT INFORMATION
  Report Type: 
  Country: None (occurrence: None)
  Receive Date: 20100910
  Receipt Date: 20090413
  Transmission Date: 20110219
  Serious: No
  Sender: FDA-Public Use
  Company Number: US-WYE-H08949609

PATIENT
  Sex: Male
  Weight: 108.51 kg

DRUGS (5)
  1. PRISTIQ [Suspect]
     Indication: DEPRESSION
     Dosage: UNKNOWN
     Route: 048
     Dates: start: 20090201, end: 20090101
  2. PRISTIQ [Suspect]
     Route: 048
     Dates: start: 20090101
  3. NYSTATIN [Concomitant]
  4. ATIVAN [Concomitant]
  5. LUVOX [Concomitant]

REACTIONS (3)
  - CONDITION AGGRAVATED [None]
  - DRUG EFFECT DECREASED [None]
  - SINUS HEADACHE [None]
